FAERS Safety Report 9358130 (Version 4)
Quarter: 2013Q3

REPORT INFORMATION
  Report Type: Spontaneous
  Country: JP (occurrence: JP)
  Receive Date: 20130620
  Receipt Date: 20130806
  Transmission Date: 20140515
  Serious: Yes (Hospitalization, Other)
  Sender: FDA-Public Use
  Company Number: JP-B.I. PHARMACEUTICALS,INC./RIDGEFIELD-2013-BI-17165NB

PATIENT
  Age: 78 Year
  Sex: Male
  Weight: 48.5 kg

DRUGS (6)
  1. PRAZAXA [Suspect]
     Dosage: 220 MG
     Route: 048
     Dates: start: 20130409
  2. TAKEPRON [Suspect]
     Dosage: 15 MG
     Route: 048
  3. MEROPEN [Suspect]
     Route: 042
  4. CARBOPLATIN [Suspect]
     Indication: NEOPLASM MALIGNANT
     Route: 065
  5. ABRAXANE [Suspect]
     Indication: NEOPLASM MALIGNANT
     Route: 065
  6. PARIET [Concomitant]
     Dosage: 10 MG
     Route: 065

REACTIONS (4)
  - Coagulation test abnormal [Recovered/Resolved]
  - C-reactive protein increased [Recovered/Resolved]
  - Anaemia [Recovered/Resolved]
  - Malaise [Not Recovered/Not Resolved]
